FAERS Safety Report 6470359-2 (Version None)
Quarter: 2009Q4

REPORT INFORMATION
  Report Type: 
  Country: None (occurrence: None)
  Receive Date: 20091202
  Receipt Date: 20091202
  Transmission Date: 20100525
  Serious: Yes (Hospitalization)
  Sender: FDA-Public Use
  Company Number: None

PATIENT
  Age: 45 Year
  Sex: Female
  Weight: 62.1 kg

DRUGS (1)
  1. TOPIRAMATE [Suspect]
     Indication: BIPOLAR I DISORDER
     Dosage: 50 MG BID PO
     Route: 048
     Dates: end: 20090829

REACTIONS (5)
  - CONFUSIONAL STATE [None]
  - DEPRESSED LEVEL OF CONSCIOUSNESS [None]
  - DISORIENTATION [None]
  - MENTAL STATUS CHANGES [None]
  - SEDATION [None]
